FAERS Safety Report 6502236-2 (Version None)
Quarter: 2009Q4

REPORT INFORMATION
  Report Type: 
  Country: None (occurrence: None)
  Receive Date: 20091214
  Receipt Date: 20091210
  Transmission Date: 20100525
  Serious: Yes (Hospitalization)
  Sender: FDA-Public Use
  Company Number: SPV1-2009-02503

PATIENT
  Sex: Female

DRUGS (2)
  1. XAGRID     (ANAGRELIDE HYDROCHLORIDE) CAPSULE [Suspect]
     Indication: ANAEMIA
     Dosage: 0.5 MG, ORAL
     Route: 048
     Dates: start: 20091201, end: 20091201
  2. HYDROXYUREA [Concomitant]

REACTIONS (2)
  - OFF LABEL USE [None]
  - VASOSPASM [None]
